FAERS Safety Report 6302829-1 (Version None)
Quarter: 2009Q3

REPORT INFORMATION
  Report Type: 
  Country: None (occurrence: None)
  Receive Date: 20090810
  Receipt Date: 20090804
  Transmission Date: 20100115
  Serious: Yes (Hospitalization)
  Sender: FDA-Public Use
  Company Number: JP-ELI_LILLY_AND_COMPANY-JP200907001293

PATIENT
  Sex: Female
  Weight: 44 kg

DRUGS (4)
  1. GEMZAR [Suspect]
     Indication: BILE DUCT CANCER STAGE IV
     Dosage: 1400 MG, OTHER
     Route: 042
     Dates: start: 20090422, end: 20090526
  2. AMARYL [Concomitant]
     Indication: DIABETES MELLITUS
     Dosage: 1 MG, DAILY (1/D)
     Route: 048
  3. PARIET [Concomitant]
     Indication: GASTROOESOPHAGEAL REFLUX DISEASE
     Dosage: 10 MG, DAILY (1/D)
     Route: 048
     Dates: start: 20090407
  4. URSO 250 [Concomitant]
     Indication: PROPHYLAXIS
     Dosage: 100 MG, 3/D
     Route: 048
     Dates: start: 20090512

REACTIONS (3)
  - CONSTIPATION [None]
  - INTERSTITIAL LUNG DISEASE [None]
  - PNEUMONIA BACTERIAL [None]
